FAERS Safety Report 9344655 (Version 1)
Quarter: 2013Q2

REPORT INFORMATION
  Report Type: Spontaneous
  Country: US (occurrence: None)
  Receive Date: 20130611
  Receipt Date: 20130611
  Transmission Date: 20140414
  Serious: No
  Sender: FDA-Public Use
  Company Number: None

PATIENT
  Age: 86 Year
  Sex: Male
  Weight: 65.2 kg

DRUGS (1)
  1. FERUMOXYTOL [Suspect]
     Indication: IRON DEFICIENCY ANAEMIA
     Route: 042
     Dates: start: 20130507, end: 20130605

REACTIONS (4)
  - Vomiting [None]
  - Lethargy [None]
  - Hypotension [None]
  - Anaphylactic reaction [None]
